FAERS Safety Report 14816037 (Version 1)
Quarter: 2018Q2

REPORT INFORMATION
  Report Type: Spontaneous
  Country: US (occurrence: US)
  Receive Date: 20180426
  Receipt Date: 20180426
  Transmission Date: 20180711
  Serious: No
  Sender: FDA-Public Use
  Company Number: US-PFIZER INC-2018041006

PATIENT
  Age: 74 Year
  Sex: Male
  Weight: 106 kg

DRUGS (2)
  1. XELJANZ [Suspect]
     Active Substance: TOFACITINIB CITRATE
     Indication: RHEUMATOID ARTHRITIS
     Dosage: 5 MG, 2X/DAY
     Route: 048
  2. XELJANZ [Suspect]
     Active Substance: TOFACITINIB CITRATE
     Dosage: 10 MG, 2X/DAY (5 MG TAKE 2 TABLETS BY MOUTH TWICE A DAY; TOTAL OF 4 TABLETS DAILY)
     Route: 048
     Dates: start: 2017

REACTIONS (3)
  - Drug ineffective [Unknown]
  - Prescribed overdose [Unknown]
  - Off label use [Unknown]

NARRATIVE: CASE EVENT DATE: 2017
